FAERS Safety Report 6577810-8 (Version None)
Quarter: 2010Q1

REPORT INFORMATION
  Report Type: 
  Country: None (occurrence: None)
  Receive Date: 20100211
  Receipt Date: 20100205
  Transmission Date: 20100710
  Serious: Yes (Hospitalization, Other)
  Sender: FDA-Public Use
  Company Number: US-BAYER-201013525GPV

PATIENT
  Age: 66 Year
  Sex: Male
  Weight: 76 kg

DRUGS (3)
  1. SORAFENIB [Suspect]
     Indication: OESOPHAGEAL CARCINOMA
     Dosage: TOTAL DAILY DOSE: 800 MG
     Route: 048
     Dates: start: 20091014, end: 20100113
  2. RDEA119 [Suspect]
     Indication: OESOPHAGEAL CARCINOMA
     Dosage: TOTAL DAILY DOSE: 20 MG
     Route: 048
     Dates: start: 20091014, end: 20100113
  3. TOPROL-XL [Concomitant]
     Indication: HYPERTENSION
     Route: 048
     Dates: start: 20090329

REACTIONS (3)
  - LEFT VENTRICULAR DYSFUNCTION [None]
  - PERICARDIAL EFFUSION [None]
  - PLEURAL EFFUSION [None]
